FAERS Safety Report 4363616-7 (Version None)
Quarter: 2004Q2

REPORT INFORMATION
  Report Type: 
  Country: None (occurrence: None)
  Receive Date: 20040524
  Receipt Date: 20040524
  Transmission Date: 20050107
  Serious: Yes (Hospitalization)
  Sender: FDA-Public Use
  Company Number: None

PATIENT
  Age: 44 Year
  Sex: Female
  Weight: 70 kg

DRUGS (5)
  1. LEVAQUIN [Suspect]
     Indication: DIVERTICULITIS
     Dosage: 500 MG QD ORAL
     Route: 048
     Dates: start: 20040413, end: 20040413
  2. SINGULAIR [Concomitant]
  3. PREMARIN [Concomitant]
  4. CLARINEX [Concomitant]
  5. ALBUTEROL [Concomitant]

REACTIONS (9)
  - ANXIETY [None]
  - ASTHENIA [None]
  - DIZZINESS [None]
  - FEELING HOT [None]
  - GENERALISED ERYTHEMA [None]
  - PRURITUS GENERALISED [None]
  - RASH GENERALISED [None]
  - SYNCOPE [None]
  - URTICARIA GENERALISED [None]
